FAERS Safety Report 22170497 (Version 4)
Quarter: 2023Q2

REPORT INFORMATION
  Report Type: Report from Study
  Country: KR (occurrence: KR)
  Receive Date: 20230404
  Receipt Date: 20230505
  Transmission Date: 20230721
  Serious: Yes (Other)
  Sender: FDA-Public Use
  Company Number: KR-ABBVIE-4713241

PATIENT
  Sex: Female
  Weight: 64 kg

DRUGS (13)
  1. RINVOQ [Suspect]
     Active Substance: UPADACITINIB
     Indication: Rheumatoid arthritis
     Route: 048
     Dates: start: 20220811
  2. ESOMEZOL CAP 20mg [Concomitant]
     Indication: Gastrooesophageal reflux disease
     Route: 048
     Dates: start: 20211118
  3. COLCHINE TAB [Concomitant]
     Indication: Mouth ulceration
     Route: 048
     Dates: start: 20211118, end: 20221129
  4. Steroids-Methylprednisolon [Concomitant]
     Indication: Rheumatoid arthritis
     Dates: start: 20221130
  5. RIVOTRIL [Concomitant]
     Active Substance: CLONAZEPAM
     Indication: Tinnitus retraining therapy
     Route: 048
     Dates: start: 20221008, end: 20221130
  6. FEROBA-YOU SR TAB [Concomitant]
     Indication: Anaemia
     Route: 048
     Dates: start: 20210819
  7. STABLON TAB [Concomitant]
     Indication: Tinnitus retraining therapy
     Route: 048
     Dates: start: 20221008
  8. vitamine D3 BON inj [Concomitant]
     Indication: Vitamin D deficiency
     Route: 030
     Dates: start: 20220516
  9. NSAIDs-ACLOFEN TAB 100mg [Concomitant]
     Indication: Rheumatoid arthritis
     Dates: start: 20221130
  10. NSAIDs-ACLOFEN TAB 100mg [Concomitant]
     Indication: Rheumatoid arthritis
     Dates: start: 20210128, end: 20221129
  11. csDMARDs-PROGRAF CAP 0.5mg [Concomitant]
     Indication: Rheumatoid arthritis
     Dates: start: 20220811, end: 20221129
  12. GINEXIN-F TAB 80mg [Concomitant]
     Indication: Tinnitus retraining therapy
     Route: 048
     Dates: start: 20220924
  13. DICHLOZID TAB 25mg [Concomitant]
     Indication: Blood pressure management
     Route: 048
     Dates: start: 20180312, end: 20221101

REACTIONS (1)
  - Deafness neurosensory [Recovering/Resolving]

NARRATIVE: CASE EVENT DATE: 20220924
